FAERS Safety Report 6516293-0 (Version None)
Quarter: 2009Q4

REPORT INFORMATION
  Report Type: 
  Country: None (occurrence: None)
  Receive Date: 20091223
  Receipt Date: 20091221
  Transmission Date: 20100525
  Serious: Yes (Death, Hospitalization)
  Sender: FDA-Public Use
  Company Number: JP-BAYER-200812637BYL

PATIENT
  Age: 71 Year
  Sex: Male
  Weight: 63 kg

DRUGS (25)
  1. NEXAVAR [Suspect]
     Indication: RENAL CELL CARCINOMA
     Dosage: UNIT DOSE: 200 MG
     Route: 048
     Dates: start: 20081119, end: 20081128
  2. NEXAVAR [Suspect]
     Dosage: TOTAL DAILY DOSE: 800 MG  UNIT DOSE: 200 MG
     Route: 048
     Dates: start: 20081007, end: 20081102
  3. NEXAVAR [Suspect]
     Dosage: TOTAL DAILY DOSE: 400 MG  UNIT DOSE: 200 MG
     Route: 048
     Dates: start: 20090210, end: 20090421
  4. NEXAVAR [Suspect]
     Dosage: UNIT DOSE: 200 MG
     Route: 048
     Dates: start: 20081129, end: 20081225
  5. NEXAVAR [Suspect]
     Dosage: TOTAL DAILY DOSE: 800 MG  UNIT DOSE: 200 MG
     Route: 048
     Dates: start: 20080716, end: 20080926
  6. RINDERON [Concomitant]
     Indication: DERMATITIS CONTACT
     Route: 061
     Dates: start: 20081104, end: 20081110
  7. RINDERON [Concomitant]
     Route: 061
     Dates: start: 20081104, end: 20081110
  8. GASMOTIN [Concomitant]
     Indication: GASTRITIS
     Route: 048
     Dates: start: 20081105, end: 20090613
  9. OXINORM [Concomitant]
     Indication: CANCER PAIN
     Route: 048
     Dates: start: 20090310, end: 20090614
  10. OXINORM [Concomitant]
     Route: 048
     Dates: start: 20090202, end: 20090205
  11. OXYCONTIN [Concomitant]
     Indication: CANCER PAIN
     Route: 048
     Dates: start: 20090420, end: 20090430
  12. OXYCONTIN [Concomitant]
     Route: 048
     Dates: start: 20090310, end: 20090429
  13. OXYCONTIN [Concomitant]
     Route: 048
     Dates: start: 20090203, end: 20090217
  14. NOVAMIN [Concomitant]
     Indication: NAUSEA
     Route: 048
     Dates: start: 20090203, end: 20090212
  15. ARGAMATE [Concomitant]
     Indication: HYPERKALAEMIA
     Route: 048
     Dates: start: 20090401, end: 20090613
  16. DUROTEP [Concomitant]
     Indication: CANCER PAIN
     Dosage: TOTAL DAILY DOSE: 2.1 MG
     Route: 062
     Dates: start: 20090430, end: 20090515
  17. DUROTEP [Concomitant]
     Dosage: TOTAL DAILY DOSE: 12.6 MG
     Route: 062
     Dates: start: 20090614, end: 20090614
  18. DUROTEP [Concomitant]
     Dosage: TOTAL DAILY DOSE: 8.4 MG
     Route: 062
     Dates: start: 20090521, end: 20090601
  19. DUROTEP [Concomitant]
     Dosage: TOTAL DAILY DOSE: 4.2 MG
     Route: 062
     Dates: start: 20090515, end: 20090520
  20. DUROTEP [Concomitant]
     Dosage: TOTAL DAILY DOSE: 12.6 MG
     Route: 062
     Dates: start: 20090602, end: 20090610
  21. DUROTEP [Concomitant]
     Dosage: TOTAL DAILY DOSE: 10 MG
     Route: 062
     Dates: start: 20090611, end: 20090613
  22. RINDERON [Concomitant]
     Indication: CANCER PAIN
     Route: 042
     Dates: start: 20090421, end: 20090427
  23. RINDERON [Concomitant]
     Route: 042
     Dates: start: 20090428, end: 20090515
  24. RINDERON [Concomitant]
     Route: 042
     Dates: start: 20090516, end: 20090615
  25. PRIMPERAN TAB [Concomitant]
     Indication: NAUSEA
     Route: 042
     Dates: start: 20090513, end: 20090517

REACTIONS (14)
  - BACK PAIN [None]
  - CARDIAC ARREST [None]
  - CONSTIPATION [None]
  - DECREASED APPETITE [None]
  - DEPRESSION [None]
  - DERMATITIS CONTACT [None]
  - GASTRITIS [None]
  - HAEMATURIA [None]
  - HYPERTENSION [None]
  - INSOMNIA [None]
  - MALAISE [None]
  - NASOPHARYNGITIS [None]
  - REFLUX OESOPHAGITIS [None]
  - RESPIRATORY ARREST [None]
